FAERS Safety Report 7343467-1 (Version None)
Quarter: 2011Q1

REPORT INFORMATION
  Report Type: 
  Country: None (occurrence: None)
  Receive Date: 20110310
  Receipt Date: 20100122
  Transmission Date: 20110831
  Serious: No
  Sender: FDA-Public Use
  Company Number: A0840973A

PATIENT
  Age: 32 Year
  Sex: Female

DRUGS (1)
  1. NICOTINE POLACRILEX [Suspect]
     Route: 048
     Dates: start: 20090101

REACTIONS (3)
  - STOMATITIS [None]
  - ORAL MUCOSAL ERUPTION [None]
  - TONGUE DISORDER [None]
